FAERS Safety Report 10063349 (Version 1)
Quarter: 2014Q2

REPORT INFORMATION
  Report Type: Spontaneous
  Country: US (occurrence: US)
  Receive Date: 20140407
  Receipt Date: 20140407
  Transmission Date: 20141212
  Serious: No
  Sender: FDA-Public Use
  Company Number: US-ROXANE LABORATORIES, INC.-2014-RO-00536RO

PATIENT
  Sex: Female

DRUGS (2)
  1. QUETIAPINE FUMARATE [Suspect]
     Indication: INSOMNIA
     Dosage: 25 MG
     Route: 065
     Dates: start: 20140309, end: 20140321
  2. LAMICTAL [Concomitant]
     Route: 065

REACTIONS (1)
  - Nightmare [Unknown]
